FAERS Safety Report 5257824-0 (Version None)
Quarter: 2007Q1

REPORT INFORMATION
  Report Type: 
  Country: None (occurrence: None)
  Receive Date: 20070307
  Receipt Date: 20070227
  Transmission Date: 20070707
  Serious: Yes (Other)
  Sender: FDA-Public Use
  Company Number: US-PFIZER INC-2006030416

PATIENT
  Sex: Female
  Weight: 103 kg

DRUGS (3)
  1. BEXTRA [Suspect]
     Route: 065
  2. SYNTHROID [Concomitant]
     Route: 065
  3. XANAX [Concomitant]
     Route: 065

REACTIONS (2)
  - MYOCARDIAL INFARCTION [None]
  - STEVENS-JOHNSON SYNDROME [None]
